FAERS Safety Report 16870236 (Version 1)
Quarter: 2019Q3

REPORT INFORMATION
  Report Type: Spontaneous
  Country: ID (occurrence: ID)
  Receive Date: 20190930
  Receipt Date: 20190930
  Transmission Date: 20191005
  Serious: Yes (Hospitalization)
  Sender: FDA-Public Use
  Company Number: ID-FRESENIUS KABI-FK201910729

PATIENT
  Age: 12 Year
  Sex: Female

DRUGS (2)
  1. GENTAMICIN (MANUFACTURER UNKNOWN) [Suspect]
     Active Substance: GENTAMICIN
     Indication: PRODUCT USED FOR UNKNOWN INDICATION
     Route: 065
  2. CEFIXIME. [Suspect]
     Active Substance: CEFIXIME
     Indication: PRODUCT USED FOR UNKNOWN INDICATION
     Route: 065

REACTIONS (2)
  - Stevens-Johnson syndrome [Unknown]
  - Toxic epidermal necrolysis [Unknown]
